FAERS Safety Report 6671179-6 (Version None)
Quarter: 2010Q2

REPORT INFORMATION
  Report Type: 
  Country: None (occurrence: None)
  Receive Date: 20100407
  Receipt Date: 20100302
  Transmission Date: 20101027
  Serious: Yes (Other)
  Sender: FDA-Public Use
  Company Number: NL-BAYER-201016362GPV

PATIENT
  Sex: Female

DRUGS (2)
  1. MIRENA [Suspect]
     Indication: DRUG USE FOR UNKNOWN INDICATION
     Route: 015
     Dates: start: 20080101
  2. DIANE-35 [Suspect]
     Indication: DRUG USE FOR UNKNOWN INDICATION

REACTIONS (24)
  - ABDOMINAL PAIN UPPER [None]
  - ACNE [None]
  - ALOPECIA [None]
  - AMNESIA [None]
  - ANGER [None]
  - ANXIETY [None]
  - BREAST INFLAMMATION [None]
  - COITAL BLEEDING [None]
  - DEPRESSED MOOD [None]
  - DIZZINESS [None]
  - DRY SKIN [None]
  - ECZEMA [None]
  - FUNGAL INFECTION [None]
  - HEADACHE [None]
  - INFLUENZA LIKE ILLNESS [None]
  - LIBIDO DECREASED [None]
  - MOOD ALTERED [None]
  - NERVOUSNESS [None]
  - PARAESTHESIA [None]
  - SKIN EXFOLIATION [None]
  - VAGINAL DISCHARGE [None]
  - VOMITING [None]
  - WEIGHT INCREASED [None]
  - WITHDRAWAL BLEED [None]
